FAERS Safety Report 5955335-8 (Version None)
Quarter: 2008Q4

REPORT INFORMATION
  Report Type: 
  Country: None (occurrence: None)
  Receive Date: 20081031
  Receipt Date: 20080714
  Transmission Date: 20090506
  Serious: No
  Sender: FDA-Public Use
  Company Number: 2008PV036156

PATIENT
  Age: 55 Year
  Sex: Male

DRUGS (5)
  1. SYMLIN [Suspect]
     Indication: TYPE 2 DIABETES MELLITUS
     Dosage: 120 MCG; QD; SC, 120 MCG; TID; SC, 120 MCG;QD; SC
     Route: 058
     Dates: start: 20070901, end: 20071201
  2. SYMLIN [Suspect]
     Indication: TYPE 2 DIABETES MELLITUS
     Dosage: 120 MCG; QD; SC, 120 MCG; TID; SC, 120 MCG;QD; SC
     Route: 058
     Dates: start: 20071201, end: 20080101
  3. SYMLIN [Suspect]
     Indication: TYPE 2 DIABETES MELLITUS
     Dosage: 120 MCG; QD; SC, 120 MCG; TID; SC, 120 MCG;QD; SC
     Route: 058
     Dates: start: 20080101
  4. LANTUS [Concomitant]
  5. ENALAPRIL MALEATE [Concomitant]

REACTIONS (2)
  - ABDOMINAL PAIN UPPER [None]
  - CONSTIPATION [None]
